FAERS Safety Report 10996917 (Version 1)
Quarter: 2015Q1

REPORT INFORMATION
  Report Type: Spontaneous
  Country: US (occurrence: None)
  Receive Date: 20150331
  Receipt Date: 20150331
  Transmission Date: 20150721
  Serious: Yes (Hospitalization)
  Sender: FDA-Public Use
  Company Number: PHEH2014US026034

PATIENT
  Age: 68 Year
  Sex: Male

DRUGS (6)
  1. LORAZEPAM (LORAZEPAM) [Concomitant]
     Active Substance: LORAZEPAM
  2. PRAVACHOL (PRAVASTATIN SODIUM) [Concomitant]
  3. TASIGNA [Suspect]
     Active Substance: NILOTINIB
     Indication: PRODUCT USED FOR UNKNOWN INDICATION
     Dates: start: 20140515
  4. LISINOPRIL (LISINOPRIL) [Concomitant]
     Active Substance: LISINOPRIL
  5. CLONIDINE (CLONIDINE) [Concomitant]
     Active Substance: CLONIDINE
  6. ASPIRIN (ACETYLSALICYLIC ACID) [Concomitant]
     Active Substance: ASPIRIN

REACTIONS (2)
  - Diarrhoea [None]
  - Pericardial effusion [None]
